FAERS Safety Report 8079099-X (Version None)
Quarter: 2012Q1

REPORT INFORMATION
  Report Type: 
  Country: None (occurrence: None)
  Receive Date: 20120128
  Receipt Date: 20110818
  Transmission Date: 20120608
  Serious: No
  Sender: FDA-Public Use
  Company Number: US-ABBOTT-11P-163-0847712-00

PATIENT
  Sex: Female
  Weight: 93.524 kg

DRUGS (4)
  1. CELEXA [Concomitant]
     Indication: DEPRESSION
  2. HUMIRA [Suspect]
     Indication: PSORIASIS
     Route: 058
     Dates: start: 20110201
  3. WELLBUTRIN [Concomitant]
     Indication: DEPRESSION
  4. DEPAKOTE [Concomitant]
     Indication: DEPRESSION

REACTIONS (1)
  - PSORIASIS [None]
